FAERS Safety Report 5835013-6 (Version None)
Quarter: 2008Q3

REPORT INFORMATION
  Report Type: 
  Country: None (occurrence: None)
  Receive Date: 20080801
  Receipt Date: 20080728
  Transmission Date: 20090109
  Serious: Yes (Hospitalization)
  Sender: FDA-Public Use
  Company Number: 6044547

PATIENT
  Age: 68 Year
  Sex: Male

DRUGS (11)
  1. BISOPROLOL FUMARATE [Suspect]
     Indication: CARDIAC FAILURE
     Dosage: 2.5 MG, 2 IN 1 D, ORAL
     Route: 048
     Dates: end: 20080622
  2. AMIODARONE HCL [Suspect]
     Indication: ATRIAL FIBRILLATION
     Dosage: 200 MG FIVE DAYS PER WEEK, ORAL
     Route: 048
     Dates: end: 20080622
  3. FUROSEMIDE [Suspect]
     Indication: OEDEMA DUE TO CARDIAC DISEASE
     Dosage: 40 MG (40 MG, 1 D); ORAL
     Route: 048
     Dates: start: 20071201, end: 20080623
  4. COVERSYL (TABLET) (PERINDOPRIL) [Concomitant]
  5. PREVISCAN (TABLET) (FLUINDIONE) [Concomitant]
  6. ASPIRIN [Concomitant]
  7. CRESTOR [Concomitant]
  8. ALLOPURINOL [Concomitant]
  9. PRAZEPAM [Concomitant]
  10. NEXIUM [Concomitant]
  11. ZOLPIDEM TARTRATE [Concomitant]

REACTIONS (20)
  - ANAEMIA MACROCYTIC [None]
  - AORTIC DILATATION [None]
  - AORTIC VALVE INCOMPETENCE [None]
  - ATRIOVENTRICULAR BLOCK FIRST DEGREE [None]
  - BLOOD PRESSURE DIASTOLIC DECREASED [None]
  - BRADYCARDIA [None]
  - BUNDLE BRANCH BLOCK LEFT [None]
  - CORONARY ARTERY STENOSIS [None]
  - CREPITATIONS [None]
  - DILATATION VENTRICULAR [None]
  - EJECTION FRACTION DECREASED [None]
  - HYPOKALAEMIA [None]
  - HYPOKINESIA [None]
  - INTERNATIONAL NORMALISED RATIO INCREASED [None]
  - ISCHAEMIC CARDIOMYOPATHY [None]
  - LEFT ATRIAL DILATATION [None]
  - LOSS OF CONSCIOUSNESS [None]
  - MITRAL VALVE INCOMPETENCE [None]
  - OEDEMA PERIPHERAL [None]
  - SYNCOPE [None]
